FAERS Safety Report 6393022-5 (Version None)
Quarter: 2009Q4

REPORT INFORMATION
  Report Type: 
  Country: None (occurrence: None)
  Receive Date: 20091008
  Receipt Date: 20070925
  Transmission Date: 20100525
  Serious: Yes (Hospitalization, Other)
  Sender: FDA-Public Use
  Company Number: US-ASTRAZENECA-2006UW22130

PATIENT
  Age: 37 Year
  Sex: Female
  Weight: 61.2 kg

DRUGS (9)
  1. SEROQUEL [Suspect]
     Indication: DEPRESSION
     Dosage: 25-100 MG EVERY NIGHT
     Route: 048
     Dates: start: 20031119
  2. SEROQUEL [Suspect]
     Route: 048
     Dates: end: 20050301
  3. GEODON [Concomitant]
     Dates: start: 20050101
  4. ALTACE [Concomitant]
     Dosage: 2.5-5 MG EVERY DAY
     Route: 048
     Dates: start: 20030101
  5. ASPIRIN [Concomitant]
     Route: 048
     Dates: start: 20030101
  6. LIPITOR [Concomitant]
     Route: 048
     Dates: start: 20050101
  7. LEXAPRO [Concomitant]
     Dates: start: 20050101
  8. HUMALOG [Concomitant]
     Dosage: 100 UNITS/1ML INJECTION
     Dates: start: 19970101
  9. ZOLOFT [Concomitant]
     Dosage: 50-100 MG
     Route: 048
     Dates: start: 20031119

REACTIONS (7)
  - DIABETES MELLITUS [None]
  - DIABETIC KETOACIDOSIS [None]
  - DIABETIC NEPHROPATHY [None]
  - HYPOGLYCAEMIA [None]
  - NEUROPATHY PERIPHERAL [None]
  - PANCREATITIS [None]
  - RETINOPATHY [None]
